FAERS Safety Report 19742639 (Version 1)
Quarter: 2021Q3

REPORT INFORMATION
  Report Type: Spontaneous
  Country: US (occurrence: US)
  Receive Date: 20210824
  Receipt Date: 20210824
  Transmission Date: 20211014
  Serious: No
  Sender: FDA-Public Use
  Company Number: US-BAYER-2021-192025

PATIENT
  Sex: Female
  Weight: 49.89 kg

DRUGS (4)
  1. VITAMINS NOS [Concomitant]
     Active Substance: VITAMINS
     Dosage: 1 DF, QD (EVERY DAY)
  2. ALEVE [Suspect]
     Active Substance: NAPROXEN SODIUM
     Indication: PAIN
     Dosage: 1 DF, QD( EVERYDAY)
  3. IBUPROFEN. [Suspect]
     Active Substance: IBUPROFEN
  4. COVID?19 VACCINE NOS. [Suspect]
     Active Substance: COVID-19 VACCINE NOS
     Dosage: 0.3 ML
     Route: 030
     Dates: start: 20210513

REACTIONS (1)
  - Drug ineffective [Unknown]
